FAERS Safety Report 16955079 (Version 1)
Quarter: 2019Q4

REPORT INFORMATION
  Report Type: Spontaneous
  Country: US (occurrence: US)
  Receive Date: 20191024
  Receipt Date: 20191024
  Transmission Date: 20200122
  Serious: No
  Sender: FDA-Public Use
  Company Number: US-APOTEX-2019AP005147

PATIENT
  Sex: Male

DRUGS (4)
  1. SYSTANE ULTRA [Concomitant]
     Active Substance: POLYETHYLENE GLYCOL 400\PROPYLENE GLYCOL
     Indication: DRY EYE
     Dosage: UNK
     Route: 065
  2. TIMOLOL MALEATE OPHTHALMIC SOLUTION USP [Suspect]
     Active Substance: TIMOLOL MALEATE
     Dosage: 1 GTT,  IN EACH EYE PER DAY
     Route: 047
  3. TIMOLOL MALEATE OPHTHALMIC SOLUTION USP [Suspect]
     Active Substance: TIMOLOL MALEATE
     Indication: PRODUCT USED FOR UNKNOWN INDICATION
     Dosage: 1 GTT, IN EACH EYE PER DAY
     Route: 047
  4. REFRESH TEARS [Concomitant]
     Active Substance: CARBOXYMETHYLCELLULOSE SODIUM
     Indication: DRY EYE
     Dosage: UNK
     Route: 065

REACTIONS (3)
  - Instillation site pain [Not Recovered/Not Resolved]
  - Product substitution issue [Unknown]
  - Eye pain [Not Recovered/Not Resolved]
